FAERS Safety Report 4340724-8 (Version None)
Quarter: 2004Q2

REPORT INFORMATION
  Report Type: 
  Country: None (occurrence: None)
  Receive Date: 20040414
  Receipt Date: 20040402
  Transmission Date: 20050107
  Serious: Yes (Other)
  Sender: FDA-Public Use
  Company Number: US-JNJFOC-20040400594

PATIENT
  Age: 68 Year
  Sex: Male
  Weight: 135.1719 kg

DRUGS (10)
  1. REMICADE [Suspect]
     Indication: ANKYLOSING SPONDYLITIS
     Dosage: 800 MG, INTRAVENOUS
     Route: 042
     Dates: start: 20010616, end: 20030116
  2. METHOTREXATE SODIUM [Concomitant]
  3. FLOMAX [Concomitant]
  4. AVAPRO [Concomitant]
  5. TESTOSTERONE [Concomitant]
  6. HYDROCODONE (TESTOSTERONE) [Concomitant]
  7. HYDROCODONE (HYDROCODONE) [Concomitant]
  8. OXYCONTIN [Concomitant]
  9. NSAIDS (NSAIDS) [Concomitant]
  10. PREDNISONE [Concomitant]

REACTIONS (3)
  - B-CELL SMALL LYMPHOCYTIC LYMPHOMA [None]
  - CHRONIC LYMPHOCYTIC LEUKAEMIA [None]
  - PLATELET COUNT DECREASED [None]
